FAERS Safety Report 6251936-0 (Version None)
Quarter: 2009Q2

REPORT INFORMATION
  Report Type: 
  Country: None (occurrence: None)
  Receive Date: 20090630
  Receipt Date: 20090623
  Transmission Date: 20091009
  Serious: Yes (Hospitalization)
  Sender: FDA-Public Use
  Company Number: PHHY2009CN25182

PATIENT
  Age: 33 Year
  Sex: Male

DRUGS (9)
  1. CYCLOSPORINE [Suspect]
     Indication: RENAL TRANSPLANT
     Dosage: 8 MG/KG/DAY
  2. CYCLOSPORINE [Suspect]
     Indication: IMMUNOSUPPRESSION
  3. METHYLPREDNISOLONE [Suspect]
     Indication: RENAL TRANSPLANT
     Dosage: 440 MG, UNK
     Route: 042
  4. METHYLPREDNISOLONE [Suspect]
     Indication: IMMUNOSUPPRESSION
     Dosage: 360 MG, UNK
     Route: 042
  5. METHYLPREDNISOLONE [Suspect]
     Dosage: 200 MG, UNK
     Route: 042
  6. PREDNISOLONE [Suspect]
     Indication: RENAL TRANSPLANT
     Dosage: 10 MG, UNK
     Route: 048
  7. PREDNISOLONE [Suspect]
     Indication: IMMUNOSUPPRESSION
  8. MYCOPHENOLATE MOFETIL [Suspect]
     Indication: RENAL TRANSPLANT
     Dosage: 2 G/DAY
  9. MYCOPHENOLATE MOFETIL [Suspect]
     Indication: IMMUNOSUPPRESSION

REACTIONS (8)
  - ARTERIOVENOUS FISTULA [None]
  - ASPERGILLOSIS [None]
  - BLOOD CREATININE INCREASED [None]
  - KIDNEY TRANSPLANT REJECTION [None]
  - REMOVAL OF TRANSPLANTED ORGAN [None]
  - RENAL INFARCT [None]
  - SURGERY [None]
  - VASCULAR GRAFT COMPLICATION [None]
